FAERS Safety Report 9508519 (Version 2)
Quarter: 2013Q3

REPORT INFORMATION
  Report Type: Spontaneous
  Country: GB (occurrence: GB)
  Receive Date: 20130909
  Receipt Date: 20130909
  Transmission Date: 20140515
  Serious: Yes (Disabling)
  Sender: FDA-Public Use
  Company Number: GB-ABBOTT-13P-167-1105707-00

PATIENT
  Age: 55 Year
  Sex: Female
  Weight: 66 kg

DRUGS (8)
  1. HUMIRA [Suspect]
     Indication: ANKYLOSING SPONDYLITIS
     Dates: start: 20110621, end: 20130326
  2. HUMIRA [Suspect]
     Indication: PAIN
  3. ADALAT [Concomitant]
     Indication: PRODUCT USED FOR UNKNOWN INDICATION
     Route: 048
  4. CALCIUM CARBONATE + CHOLECALCIFEROL [Concomitant]
     Indication: SPONDYLITIS
     Route: 048
  5. CO-CODAMOL [Concomitant]
     Indication: PAIN
     Route: 048
  6. ETORICOXIB [Concomitant]
     Indication: PAIN
     Dosage: 1-2 TABLETS PER DAY
     Route: 048
  7. FUROSEMIDE [Concomitant]
     Indication: PRODUCT USED FOR UNKNOWN INDICATION
     Route: 048
  8. OMEPRAZOLE [Concomitant]
     Indication: PRODUCT USED FOR UNKNOWN INDICATION
     Route: 048

REACTIONS (5)
  - Skin ulcer [Recovered/Resolved]
  - Localised infection [Unknown]
  - Impaired healing [Unknown]
  - Foot deformity [Unknown]
  - Foot deformity [Unknown]
